FAERS Safety Report 15697805 (Version 1)
Quarter: 2018Q4

REPORT INFORMATION
  Report Type: Spontaneous
  Country: CN (occurrence: CN)
  Receive Date: 20181207
  Receipt Date: 20181207
  Transmission Date: 20190205
  Serious: Yes (Other)
  Sender: FDA-Public Use
  Company Number: CN-JNJFOC-20181130895

PATIENT

DRUGS (1)
  1. TYLENOL CHILDRENS SUSPENSION [Suspect]
     Active Substance: ACETAMINOPHEN
     Indication: PATENT DUCTUS ARTERIOSUS
     Route: 048

REACTIONS (6)
  - Product use issue [Unknown]
  - Product use in unapproved indication [Unknown]
  - Hyperbilirubinaemia [Unknown]
  - Therapeutic response unexpected [Unknown]
  - Off label use [Unknown]
  - Oliguria [Unknown]
